FAERS Safety Report 23409160 (Version 2)
Quarter: 2024Q1

REPORT INFORMATION
  Report Type: Spontaneous
  Country: SG (occurrence: None)
  Receive Date: 20240117
  Receipt Date: 20240208
  Transmission Date: 20240410
  Serious: Yes (Other)
  Sender: FDA-Public Use
  Company Number: SG-ROCHE-3492903

PATIENT
  Sex: Female
  Weight: 60 kg

DRUGS (2)
  1. PERJETA [Suspect]
     Active Substance: PERTUZUMAB
     Indication: Breast cancer
     Dosage: APRIL 2021 ( 8 SESSIONS), JAN 2022 (13 SESSIONS)
     Route: 065
     Dates: start: 202104, end: 202209
  2. HERCEPTIN [Suspect]
     Active Substance: TRASTUZUMAB
     Indication: Breast cancer
     Dosage: APRIL 2021 ( 8 SESSIONS), JAN?2022 (13 SESSIONS)
     Route: 065
     Dates: start: 202104, end: 202209

REACTIONS (3)
  - Brain neoplasm [Unknown]
  - Pyrexia [Unknown]
  - Dysgeusia [Unknown]
